FAERS Safety Report 5907496-4 (Version None)
Quarter: 2008Q3

REPORT INFORMATION
  Report Type: 
  Country: None (occurrence: None)
  Receive Date: 20080929
  Receipt Date: 20080919
  Transmission Date: 20090109
  Serious: Yes (Disabling)
  Sender: FDA-Public Use
  Company Number: CAP08000002

PATIENT
  Age: 58 Year
  Sex: Female
  Weight: 71.7 kg

DRUGS (2)
  1. ACTONEL [Suspect]
     Indication: OSTEOPOROSIS
     Dosage: 35 MG ONCE WEEKLY, ORAL
     Route: 048
     Dates: start: 20050101, end: 20070701
  2. ATACAND /01349502/ (CANDESARTAN CILEXTIL) [Concomitant]

REACTIONS (5)
  - CORNEAL DYSTROPHY [None]
  - DRY EYE [None]
  - EYE DISORDER [None]
  - EYE PAIN [None]
  - IMPAIRED WORK ABILITY [None]
